FAERS Safety Report 4522126-4 (Version None)
Quarter: 2004Q4

REPORT INFORMATION
  Report Type: 
  Country: None (occurrence: None)
  Receive Date: 20041207
  Receipt Date: 20041123
  Transmission Date: 20050328
  Serious: Yes (Hospitalization)
  Sender: FDA-Public Use
  Company Number: 2004UW24410

PATIENT
  Age: 80 Year
  Sex: Male

DRUGS (9)
  1. CRESTOR [Suspect]
     Dosage: 5 MG PO
     Route: 048
  2. MICARDIS HCT [Concomitant]
  3. NORVASC [Concomitant]
  4. LEXAPRO [Concomitant]
  5. XANAX [Concomitant]
  6. PROSCAR [Concomitant]
  7. FLOMAX [Concomitant]
  8. PREVACID [Concomitant]
  9. BIAXIN [Concomitant]

REACTIONS (5)
  - ALANINE AMINOTRANSFERASE INCREASED [None]
  - ASPARTATE AMINOTRANSFERASE INCREASED [None]
  - DIARRHOEA [None]
  - HELICOBACTER INFECTION [None]
  - RHABDOMYOLYSIS [None]
